FAERS Safety Report 21246586 (Version 1)
Quarter: 2022Q3

REPORT INFORMATION
  Report Type: Spontaneous
  Country: ES (occurrence: ES)
  Receive Date: 20220824
  Receipt Date: 20220824
  Transmission Date: 20221026
  Serious: Yes (Hospitalization, Other)
  Sender: FDA-Public Use
  Company Number: ES-SUN PHARMACEUTICAL INDUSTRIES LTD-2022R1-349618

PATIENT
  Age: 25 Year
  Sex: Male

DRUGS (2)
  1. CLOZAPINE [Suspect]
     Active Substance: CLOZAPINE
     Indication: Schizophrenia
     Dosage: UNTIL A DOSE OF 400 MG PER DAY WAS REACHEDUNK
     Route: 065
  2. PALIPERIDONE [Suspect]
     Active Substance: PALIPERIDONE
     Indication: Schizophrenia
     Dosage: 12 MILLIGRAM, DAILY
     Route: 048

REACTIONS (6)
  - Therapy partial responder [Unknown]
  - Treatment noncompliance [Unknown]
  - Somnolence [Recovering/Resolving]
  - Sexual dysfunction [Recovering/Resolving]
  - Dysarthria [Recovering/Resolving]
  - Drooling [Recovering/Resolving]
